FAERS Safety Report 13805804 (Version 2)
Quarter: 2018Q1

REPORT INFORMATION
  Report Type: Spontaneous
  Country: CA (occurrence: CA)
  Receive Date: 20170728
  Receipt Date: 20180302
  Transmission Date: 20180508
  Serious: Yes (Death)
  Sender: FDA-Public Use
  Company Number: CA-PFIZER INC-2017323512

PATIENT
  Age: 2 Year
  Sex: Male
  Weight: 10.5 kg

DRUGS (1)
  1. CRIZOTINIB [Suspect]
     Active Substance: CRIZOTINIB
     Indication: SARCOMA METASTATIC
     Dosage: 125 MG, 2X/DAY
     Route: 048
     Dates: start: 20170420, end: 20170421

REACTIONS (1)
  - Respiratory failure [Fatal]

NARRATIVE: CASE EVENT DATE: 20170501
